FAERS Safety Report 8266263-X (Version None)
Quarter: 2012Q2

REPORT INFORMATION
  Report Type: 
  Country: None (occurrence: None)
  Receive Date: 20120406
  Receipt Date: 20120404
  Transmission Date: 20120825
  Serious: Yes (Other)
  Sender: FDA-Public Use
  Company Number: GB-ABBOTT-12P-167-0921751-00

PATIENT
  Weight: 79 kg

DRUGS (2)
  1. HUMIRA [Suspect]
     Indication: ANKYLOSING SPONDYLITIS
     Route: 058
     Dates: start: 20100113, end: 20110922
  2. METHOTREXATE [Concomitant]
     Indication: PRODUCT USED FOR UNKNOWN INDICATION
     Dates: start: 20040913, end: 20110922

REACTIONS (1)
  - DIZZINESS [None]
